FAERS Safety Report 4480982-2 (Version None)
Quarter: 2004Q4

REPORT INFORMATION
  Report Type: 
  Country: None (occurrence: None)
  Receive Date: 20041019
  Receipt Date: 20041005
  Transmission Date: 20050328
  Serious: Yes (Death)
  Sender: FDA-Public Use
  Company Number: K200401526

PATIENT
  Age: 76 Year

DRUGS (3)
  1. NASABID SR(PSEUDOEPHEDRINE/GUAFENSIN) [Suspect]
     Dosage: ORAL
     Route: 048
  2. CODEINE(CODEINE) [Suspect]
     Dosage: ORAL
     Route: 048
  3. ASPIRIN [Suspect]
     Dosage: ORAL
     Route: 048

REACTIONS (2)
  - COMPLETED SUICIDE [None]
  - OVERDOSE [None]
